FAERS Safety Report 4966866-1 (Version None)
Quarter: 2006Q2

REPORT INFORMATION
  Report Type: 
  Country: None (occurrence: None)
  Receive Date: 20060407
  Receipt Date: 20051104
  Transmission Date: 20061013
  Serious: Yes (Hospitalization, Other)
  Sender: FDA-Public Use
  Company Number: US-MERCK-0511USA01070

PATIENT
  Age: 49 Year
  Sex: Male
  Weight: 52 kg

DRUGS (3)
  1. VIOXX [Suspect]
     Indication: ARTHRITIS
     Route: 048
     Dates: start: 20010401, end: 20020113
  2. ATIVAN [Concomitant]
     Route: 065
  3. LORCET-HD [Concomitant]
     Route: 065
     Dates: start: 19890101

REACTIONS (6)
  - ANGINA PECTORIS [None]
  - ARRHYTHMIA [None]
  - CARDIAC DISORDER [None]
  - CHEST PAIN [None]
  - MYOCARDIAL INFARCTION [None]
  - THYROID DISORDER [None]
